FAERS Safety Report 17741826 (Version 2)
Quarter: 2020Q2

REPORT INFORMATION
  Report Type: Spontaneous
  Country: BR (occurrence: BR)
  Receive Date: 20200504
  Receipt Date: 20200611
  Transmission Date: 20200714
  Serious: Yes (Other)
  Sender: FDA-Public Use
  Company Number: BR-ROCHE-2592162

PATIENT
  Sex: Female

DRUGS (2)
  1. TAMIFLU [Suspect]
     Active Substance: OSELTAMIVIR PHOSPHATE
     Indication: H1N1 INFLUENZA
     Route: 065
     Dates: start: 20200424
  2. TAMIFLU [Suspect]
     Active Substance: OSELTAMIVIR PHOSPHATE
     Route: 065

REACTIONS (5)
  - Syncope [Recovered/Resolved]
  - Dyspnoea [Unknown]
  - Pulmonary pain [Recovered/Resolved]
  - Vomiting [Recovered/Resolved]
  - Reading disorder [Unknown]
